FAERS Safety Report 7632974-X (Version None)
Quarter: 2011Q3

REPORT INFORMATION
  Report Type: 
  Country: None (occurrence: None)
  Receive Date: 20110725
  Receipt Date: 20110718
  Transmission Date: 20111222
  Serious: Yes (Death)
  Sender: FDA-Public Use
  Company Number: FR-PFIZER INC-2011167055

PATIENT

DRUGS (1)
  1. ARGATROBAN [Suspect]

REACTIONS (1)
  - HAEMORRHAGE [None]
